FAERS Safety Report 4958648-1 (Version None)
Quarter: 2006Q1

REPORT INFORMATION
  Report Type: 
  Country: None (occurrence: None)
  Receive Date: 20060127
  Receipt Date: 20050110
  Transmission Date: 20060701
  Serious: Yes (Death)
  Sender: FDA-Public Use
  Company Number: 05-01-0049

PATIENT
  Age: 25 Year
  Sex: Female

DRUGS (7)
  1. CLOZAPINE [Suspect]
     Dosage: 400MG QD, ORAL
     Route: 048
     Dates: start: 20010401, end: 20050106
  2. CELEXA [Concomitant]
  3. DDAVP [Concomitant]
  4. DEPAKOTE [Concomitant]
  5. ESKALITH [Concomitant]
  6. RISPERDAL [Concomitant]
  7. ZOVIA (OVULEN 50) [Concomitant]

REACTIONS (1)
  - PULMONARY EMBOLISM [None]
